FAERS Safety Report 26185882 (Version 1)
Quarter: 2025Q4

REPORT INFORMATION
  Report Type: Spontaneous
  Country: US (occurrence: None)
  Receive Date: 20251220
  Receipt Date: 20251220
  Transmission Date: 20260117
  Serious: Yes (Death, Life-Threatening, Hospitalization)
  Sender: FDA-CTU
  Company Number: None

PATIENT
  Age: 50 Year
  Sex: Female
  Weight: 45 kg

DRUGS (3)
  1. IRON DEXTRAN [Suspect]
     Active Substance: IRON DEXTRAN
  2. UNSPECIFIED INGREDIENT [Suspect]
     Active Substance: UNSPECIFIED INGREDIENT
  3. VENOFER [Suspect]
     Active Substance: IRON SUCROSE

REACTIONS (1)
  - Haematoma [None]

NARRATIVE: CASE EVENT DATE: 20181211
